FAERS Safety Report 8299881-3 (Version None)
Quarter: 2012Q2

REPORT INFORMATION
  Report Type: 
  Country: None (occurrence: None)
  Receive Date: 20120419
  Receipt Date: 20120402
  Transmission Date: 20120825
  Serious: Yes (Hospitalization)
  Sender: FDA-Public Use
  Company Number: FR-BAXTER-2012BAX001887

PATIENT
  Sex: Male

DRUGS (8)
  1. DOXORUBICIN                        /00330902/ [Concomitant]
     Route: 042
     Dates: start: 20120307, end: 20120307
  2. IFOSFAMIDE [Suspect]
     Route: 042
     Dates: start: 20120307, end: 20120307
  3. MESNA [Concomitant]
     Route: 042
     Dates: start: 20120307, end: 20120308
  4. COSMEGEN [Concomitant]
     Route: 042
     Dates: start: 20120307, end: 20120307
  5. EMEND [Concomitant]
     Indication: ANTIEMETIC SUPPORTIVE CARE
     Route: 048
     Dates: start: 20120307, end: 20120309
  6. VINCRISTINE                        /00078802/ [Concomitant]
     Route: 042
     Dates: start: 20120307, end: 20120307
  7. ONDANSETRON [Concomitant]
     Indication: ANTIEMETIC SUPPORTIVE CARE
     Route: 042
     Dates: start: 20120307, end: 20120309
  8. PLITICAN [Suspect]
     Route: 042
     Dates: start: 20120307, end: 20120307

REACTIONS (1)
  - CONVULSION [None]
